FAERS Safety Report 5033030-X (Version None)
Quarter: 2006Q2

REPORT INFORMATION
  Report Type: 
  Country: None (occurrence: None)
  Receive Date: 20060515
  Receipt Date: 20060316
  Transmission Date: 20061013
  Serious: No
  Sender: FDA-Public Use
  Company Number: S06-USA-01160-01

PATIENT
  Age: 79 Year
  Sex: Male

DRUGS (13)
  1. NAMENDA [Suspect]
     Indication: VASCULAR DEMENTIA
     Dates: start: 20050101
  2. NAMENDA [Suspect]
     Indication: VASCULAR DEMENTIA
     Dosage: 15 MG QD PO
     Route: 048
  3. QUETIAPINE FUMARATE [Concomitant]
  4. NITROGLYCERIN [Concomitant]
  5. METOPROLOL TARTRATE [Concomitant]
  6. LISINOPRIL [Concomitant]
  7. ISOSORBIDE [Concomitant]
  8. LASIX [Concomitant]
  9. CISAPRIDE [Concomitant]
  10. AMIODARONE HCL [Concomitant]
  11. HYDROCORTISONE [Concomitant]
  12. TYLENOL W/ CODEINE NO. 3 [Concomitant]
  13. ASPIRIN [Concomitant]

REACTIONS (1)
  - URINE AMPHETAMINE POSITIVE [None]
